FAERS Safety Report 20279772 (Version 2)
Quarter: 2022Q1

REPORT INFORMATION
  Report Type: Spontaneous
  Country: US (occurrence: None)
  Receive Date: 20220103
  Receipt Date: 20220311
  Transmission Date: 20220424
  Serious: No
  Sender: FDA-Public Use
  Company Number: 2021A909694

PATIENT
  Age: 57 Year
  Sex: Male
  Weight: 108.9 kg

DRUGS (2)
  1. BYDUREON BCISE [Suspect]
     Active Substance: EXENATIDE
     Indication: Type 2 diabetes mellitus
     Route: 058
     Dates: start: 2021
  2. BYDUREON [Concomitant]
     Active Substance: EXENATIDE
     Indication: Type 2 diabetes mellitus
     Route: 058
     Dates: end: 2021

REACTIONS (8)
  - Injection site mass [Not Recovered/Not Resolved]
  - Incorrect dose administered by device [Unknown]
  - Drug dose omission by device [Recovered/Resolved]
  - Wrong technique in device usage process [Recovered/Resolved]
  - Device use issue [Unknown]
  - Device leakage [Unknown]
  - Device malfunction [Unknown]
  - Needle issue [Unknown]

NARRATIVE: CASE EVENT DATE: 20210101
